FAERS Safety Report 7607850-9 (Version None)
Quarter: 2011Q3

REPORT INFORMATION
  Report Type: 
  Country: None (occurrence: None)
  Receive Date: 20110714
  Receipt Date: 20110705
  Transmission Date: 20111222
  Serious: Yes (Hospitalization, Other)
  Sender: FDA-Public Use
  Company Number: US-BIOGENIDEC-2011BI016967

PATIENT
  Sex: Female

DRUGS (9)
  1. IMITREX [Concomitant]
  2. ATIVAN [Concomitant]
  3. ZANAFLEX [Concomitant]
     Route: 048
  4. EFFEXOR [Concomitant]
  5. CLONAZEPAM [Concomitant]
  6. VICODIN [Concomitant]
  7. AVONEX [Suspect]
     Indication: MULTIPLE SCLEROSIS
     Route: 030
     Dates: start: 20110119
  8. AMBIEN [Concomitant]
  9. GABAPENTIN [Concomitant]
     Route: 048
     Dates: start: 20060101

REACTIONS (5)
  - GAIT DISTURBANCE [None]
  - MULTIPLE SCLEROSIS [None]
  - SURGERY [None]
  - CONVULSION [None]
  - RESTLESS LEGS SYNDROME [None]
